FAERS Safety Report 19364181 (Version 1)
Quarter: 2021Q2

REPORT INFORMATION
  Report Type: Spontaneous
  Country: BR (occurrence: BR)
  Receive Date: 20210603
  Receipt Date: 20210603
  Transmission Date: 20210717
  Serious: Yes (Hospitalization, Other)
  Sender: FDA-Public Use
  Company Number: NVSC2021BR122700

PATIENT
  Age: 67 Year
  Sex: Male
  Weight: 100 kg

DRUGS (5)
  1. TAFINLAR [Suspect]
     Active Substance: DABRAFENIB MESYLATE
     Indication: MALIGNANT MELANOMA
     Dosage: 75 MG (EVERY 12 HOURS)
     Route: 048
     Dates: start: 201806
  2. XULTOPHY 100/3.6 [Concomitant]
     Active Substance: INSULIN DEGLUDEC\LIRAGLUTIDE
     Indication: DIABETES MELLITUS
     Dosage: 10 UNK, QD
     Route: 058
  3. MEKINIST [Suspect]
     Active Substance: TRAMETINIB DIMETHYL SULFOXIDE
     Indication: MALIGNANT MELANOMA
     Dosage: 2 MG, QD
     Route: 048
     Dates: start: 201806
  4. PRESSAT [Concomitant]
     Active Substance: AMLODIPINE BESYLATE
     Indication: PRODUCT USED FOR UNKNOWN INDICATION
     Dosage: 5 MG (EVERY 12 HOURS)
     Route: 048
  5. ZYLORIC [Concomitant]
     Active Substance: ALLOPURINOL
     Indication: PRODUCT USED FOR UNKNOWN INDICATION
     Dosage: UNK
     Route: 048

REACTIONS (6)
  - Confusional state [Unknown]
  - Dysarthria [Recovered/Resolved]
  - Hemiparesis [Not Recovered/Not Resolved]
  - Hypoaesthesia [Not Recovered/Not Resolved]
  - Cerebrovascular accident [Recovering/Resolving]
  - Haemorrhage [Unknown]

NARRATIVE: CASE EVENT DATE: 20210502
